FAERS Safety Report 6008176-X (Version None)
Quarter: 2008Q4

REPORT INFORMATION
  Report Type: 
  Country: None (occurrence: None)
  Receive Date: 20081217
  Receipt Date: 20080731
  Transmission Date: 20090506
  Serious: No
  Sender: FDA-Public Use
  Company Number: US-ASTRAZENECA-2008UW14924

PATIENT
  Age: 63 Year
  Sex: Female
  Weight: 61.7 kg

DRUGS (2)
  1. CRESTOR [Suspect]
     Indication: BLOOD CHOLESTEROL INCREASED
     Dosage: TOOK 2 DOSES, 20 MG
     Route: 048
  2. BLOOD PRESSURE MEDICATION [Concomitant]

REACTIONS (4)
  - COUGH [None]
  - HEADACHE [None]
  - INITIAL INSOMNIA [None]
  - NECK PAIN [None]
